FAERS Safety Report 8900120 (Version 1)
Quarter: 2012Q4

REPORT INFORMATION
  Report Type: 
  Country: US (occurrence: US)
  Receive Date: 20121108
  Receipt Date: 20121108
  Transmission Date: 20130627
  Serious: No
  Sender: FDA-Public Use
  Company Number: US-AMGEN-USASP2012037275

PATIENT
  Age: 75 Year
  Sex: Female
  Weight: 99.32 kg

DRUGS (11)
  1. ENBREL [Suspect]
     Indication: PRODUCT USED FOR UNKNOWN INDICATION
     Dosage: 50 mg, qwk
  2. FOLIC ACID [Concomitant]
  3. VITAMIN D /00107901/ [Concomitant]
  4. LANSOPRAZOLE [Concomitant]
     Dosage: 3 mg, UNK
  5. CALCIUM +D                         /00188401/ [Concomitant]
  6. BENICAR [Concomitant]
     Dosage: 20 mg, UNK
  7. METHOTREXATE [Concomitant]
     Dosage: 2.5 mg, UNK
  8. ATENOLOL [Concomitant]
     Dosage: 100 mg, UNK
  9. LEVOTHYROXIN [Concomitant]
     Dosage: 100 mug, UNK
  10. LIPITOR [Concomitant]
  11. PRESERVISION LUTEIN [Concomitant]

REACTIONS (2)
  - Furuncle [Recovered/Resolved]
  - Fungal infection [Recovered/Resolved]
